FAERS Safety Report 9986188 (Version 1)
Quarter: 2014Q1

REPORT INFORMATION
  Report Type: Report from Study
  Country: US (occurrence: US)
  Receive Date: 20140307
  Receipt Date: 20140307
  Transmission Date: 20141002
  Serious: No
  Sender: FDA-Public Use
  Company Number: US-ABBVIE-13P-163-1085449-00

PATIENT
  Age: 26 Year
  Sex: Female

DRUGS (9)
  1. HUMIRA [Suspect]
     Indication: COLITIS ULCERATIVE
     Dates: start: 201301
  2. HUMIRA [Suspect]
     Dosage: EVERY WEEK
     Dates: start: 201303
  3. ASACOL [Concomitant]
     Indication: PRODUCT USED FOR UNKNOWN INDICATION
     Dosage: (3) IN THE MORNING; (3) AT NIGHT
  4. ASACOL [Concomitant]
     Dosage: (3) AT NIGHT
  5. OCELLA [Concomitant]
     Indication: CONTRACEPTION
     Dosage: ONE PILL DAILY, CONTINUOUSLY
  6. FOLIC ACID [Concomitant]
     Indication: PRODUCT USED FOR UNKNOWN INDICATION
  7. MULTIVITAMIN [Concomitant]
     Indication: PRODUCT USED FOR UNKNOWN INDICATION
  8. ZYRTEC D [Concomitant]
     Indication: HYPERSENSITIVITY
  9. TYLENOL [Concomitant]
     Indication: HEADACHE

REACTIONS (4)
  - Gastrointestinal motility disorder [Recovered/Resolved]
  - Colitis ulcerative [Unknown]
  - Sinus headache [Unknown]
  - Stress [Unknown]
